FAERS Safety Report 21067030 (Version 2)
Quarter: 2023Q2

REPORT INFORMATION
  Report Type: Spontaneous
  Country: JP (occurrence: JP)
  Receive Date: 20220712
  Receipt Date: 20230606
  Transmission Date: 20230721
  Serious: Yes (Hospitalization)
  Sender: FDA-Public Use
  Company Number: JP-SUN PHARMACEUTICAL INDUSTRIES LTD-2022R1-343738

PATIENT
  Age: 65 Year
  Sex: Female

DRUGS (4)
  1. SULINDAC [Suspect]
     Active Substance: SULINDAC
     Indication: Rheumatoid arthritis
     Dosage: 300 MILLIGRAM, DAILY
     Route: 065
  2. METHOTREXATE [Concomitant]
     Active Substance: METHOTREXATE
     Indication: Product used for unknown indication
     Dosage: 6 MILLIGRAM, WEEKLY
     Route: 065
  3. PREDNISOLONE [Concomitant]
     Active Substance: PREDNISOLONE
     Indication: Product used for unknown indication
     Dosage: 5 MILLIGRAM, DAILY
     Route: 065
  4. SULFASALAZINE [Concomitant]
     Active Substance: SULFASALAZINE
     Indication: Product used for unknown indication
     Dosage: 1 GRAM, DAILY
     Route: 065

REACTIONS (1)
  - Small intestinal stenosis [Recovered/Resolved]
